FAERS Safety Report 6531488-8 (Version None)
Quarter: 2010Q1

REPORT INFORMATION
  Report Type: 
  Country: None (occurrence: None)
  Receive Date: 20100108
  Receipt Date: 20091211
  Transmission Date: 20100710
  Serious: No
  Sender: FDA-Public Use
  Company Number: US-BAYER-201010004BCC

PATIENT
  Age: 86 Year
  Sex: Male
  Weight: 83 kg

DRUGS (14)
  1. ALEVE [Suspect]
     Indication: MUSCULOSKELETAL PAIN
     Dosage: TOTAL DAILY DOSE: 1320 MG  UNIT DOSE: 220 MG
     Route: 048
     Dates: start: 20091201
  2. ALEVE [Suspect]
     Indication: MUSCULOSKELETAL PAIN
     Dosage: TOTAL DAILY DOSE: 440 MG  UNIT DOSE: 220 MG
     Route: 048
     Dates: start: 20091208, end: 20091208
  3. ALEVE [Suspect]
     Dosage: TOTAL DAILY DOSE: 440 MG  UNIT DOSE: 220 MG
     Route: 048
     Dates: start: 20091209
  4. BENICAR [Concomitant]
     Route: 065
  5. GEMFIBROZIL [Concomitant]
     Route: 065
  6. AMLODIPINE [Concomitant]
     Route: 065
  7. PLAVIX [Concomitant]
     Route: 065
  8. LIPITOR [Concomitant]
     Route: 065
  9. IPRATROPIUM [Concomitant]
     Route: 065
  10. FLUTICASONE [Concomitant]
     Route: 065
  11. NATURE MADE FISH OIL [Concomitant]
     Route: 065
  12. BLUE BONNETT MULTIVITAMIN [Concomitant]
     Route: 065
  13. ASPIRIN [Concomitant]
     Route: 065
  14. TIMOLOL MALEATE [Concomitant]
     Route: 065

REACTIONS (4)
  - ERYTHEMA [None]
  - NO ADVERSE EVENT [None]
  - PRURITUS [None]
  - URTICARIA [None]
